FAERS Safety Report 9944638 (Version 1)
Quarter: 2014Q1

REPORT INFORMATION
  Report Type: Report from Study
  Country: US (occurrence: US)
  Receive Date: 20140303
  Receipt Date: 20140303
  Transmission Date: 20141002
  Serious: No
  Sender: FDA-Public Use
  Company Number: US-ABBVIE-13P-163-1052880-00

PATIENT
  Age: 23 Year
  Sex: Male

DRUGS (4)
  1. HUMIRA [Suspect]
     Indication: CROHN^S DISEASE
     Dates: start: 201204
  2. APRISO [Concomitant]
     Indication: CROHN^S DISEASE
     Dosage: A DAY
  3. DESONIDE [Concomitant]
     Indication: ECZEMA
  4. ZYRTEC [Concomitant]
     Indication: HYPERSENSITIVITY
     Dosage: EVERY DAY

REACTIONS (2)
  - Device malfunction [Not Recovered/Not Resolved]
  - Diarrhoea [Not Recovered/Not Resolved]
